FAERS Safety Report 10137117 (Version 1)
Quarter: 2014Q2

REPORT INFORMATION
  Report Type: Spontaneous
  Country: US (occurrence: US)
  Receive Date: 20140429
  Receipt Date: 20140429
  Transmission Date: 20141212
  Serious: No
  Sender: FDA-Public Use
  Company Number: US-ABBVIE-14P-163-1225466-00

PATIENT
  Age: 57 Year
  Sex: Male
  Weight: 106.69 kg

DRUGS (4)
  1. ANDROGEL [Suspect]
     Indication: BLOOD TESTOSTERONE DECREASED
     Dosage: 4 PUMPS DAILY (3 PUMPS IN AM, 1 PUMP AT NIGHT)
     Route: 061
     Dates: start: 2012
  2. ANDROGEL [Suspect]
     Dosage: 6 PUMPS DAILY (3 IN AM, 3 AT NIGHT)
     Route: 061
  3. LIPITOR [Concomitant]
     Indication: BLOOD CHOLESTEROL INCREASED
  4. ANTIHYPERTENSIVES [Concomitant]
     Indication: HYPERTENSION
     Dosage: ^LITTLE BROWN PILL^
     Route: 048
     Dates: start: 2012, end: 2014

REACTIONS (4)
  - Weight decreased [Not Recovered/Not Resolved]
  - Weight increased [Recovering/Resolving]
  - Therapeutic response changed [Not Recovered/Not Resolved]
  - Red blood cell count increased [Not Recovered/Not Resolved]
